FAERS Safety Report 8421002-4 (Version None)
Quarter: 2012Q2

REPORT INFORMATION
  Report Type: 
  Country: None (occurrence: None)
  Receive Date: 20120608
  Receipt Date: 20120605
  Transmission Date: 20120825
  Serious: No
  Sender: FDA-Public Use
  Company Number: US-PFIZER INC-2012053719

PATIENT
  Sex: Female

DRUGS (2)
  1. SEROQUEL [Suspect]
     Dosage: ISO I, ONCE A DAY
  2. PRISTIQ [Suspect]
     Dosage: 100 UNK, ONCE A DAY

REACTIONS (2)
  - MALAISE [None]
  - CONFUSIONAL STATE [None]
